FAERS Safety Report 4875470-5 (Version None)
Quarter: 2006Q1

REPORT INFORMATION
  Report Type: 
  Country: None (occurrence: None)
  Receive Date: 20060105
  Receipt Date: 20051221
  Transmission Date: 20060701
  Serious: Yes (Other)
  Sender: FDA-Public Use
  Company Number: 2005-DE-05631GD

PATIENT
  Sex: Male

DRUGS (3)
  1. ZIDOVUDINE [Suspect]
     Indication: HIV INFECTION
  2. LAMIVUDINE [Suspect]
     Indication: HIV INFECTION
  3. INDINAVIR (INDINAVIR) [Suspect]
     Indication: HIV INFECTION

REACTIONS (2)
  - DRUG RESISTANCE [None]
  - VIRAL MUTATION IDENTIFIED [None]
